FAERS Safety Report 4818937-8 (Version None)
Quarter: 2005Q4

REPORT INFORMATION
  Report Type: 
  Country: None (occurrence: None)
  Receive Date: 20051101
  Receipt Date: 20051019
  Transmission Date: 20060501
  Serious: Yes (Other)
  Sender: FDA-Public Use
  Company Number: 2005145144

PATIENT
  Age: 72 Year
  Sex: Female
  Weight: 65 kg

DRUGS (18)
  1. ZYVOX [Suspect]
     Indication: ABDOMINAL SEPSIS
     Dosage: 1200 MG (600 MG, 2 IN 1 D), INTRAVENOUS
     Route: 042
     Dates: start: 20050910, end: 20050919
  2. AMPHOTERICIN B [Suspect]
     Indication: ABDOMINAL SEPSIS
     Dosage: INTRAVENOUS
     Route: 042
     Dates: end: 20050919
  3. VANCOMYCIN [Concomitant]
  4. TAZOCIN (PIPERACILLIN SODIUM, TAZOBACTAM SODIUM) [Concomitant]
  5. FUROSEMIDE [Concomitant]
  6. HEPARIN [Concomitant]
  7. PARACETAMOL (PARACETAMOL) [Concomitant]
  8. LANSOPRAZOLE [Concomitant]
  9. METOCLOPRAMIDE [Concomitant]
  10. CITALOPRAM (CITALOPRAM) [Concomitant]
  11. METRONIDAZOLE [Concomitant]
  12. PANTOPRAZOLE SODIUM [Concomitant]
  13. DOBUTAMINE (DOBUTAMINE) [Concomitant]
  14. CYCLIZINE (CYCLIZINE) [Concomitant]
  15. MORPHINE [Concomitant]
  16. NORADRENALINE (NOREPINEPHRINE) [Concomitant]
  17. TAMOXIFEN CITRATE [Concomitant]
  18. ANASTROZOLE (ANASTROZOLE) [Concomitant]

REACTIONS (1)
  - HEPATOTOXICITY [None]
